FAERS Safety Report 9981321 (Version 1)
Quarter: 2014Q1

REPORT INFORMATION
  Report Type: Spontaneous
  Country: US (occurrence: US)
  Receive Date: 20140307
  Receipt Date: 20140307
  Transmission Date: 20141002
  Serious: No
  Sender: FDA-Public Use
  Company Number: US-PFIZER INC-2014061956

PATIENT
  Sex: Female

DRUGS (4)
  1. LYRICA [Suspect]
     Indication: NEUROPATHY PERIPHERAL
     Dosage: 200 MG, 2X/DAY
  2. LYRICA [Interacting]
     Indication: NEURALGIA
     Dosage: 300 MG, 2X/DAY
  3. ZOFRAN [Suspect]
     Dosage: UNK
  4. METHADONE [Interacting]
     Dosage: UNK

REACTIONS (4)
  - Weight increased [Unknown]
  - Drug interaction [Unknown]
  - Amnesia [Unknown]
  - Vision blurred [Unknown]
